FAERS Safety Report 9397682 (Version 1)
Quarter: 2013Q3

REPORT INFORMATION
  Report Type: Spontaneous
  Country: US (occurrence: US)
  Receive Date: 20130712
  Receipt Date: 20130712
  Transmission Date: 20140515
  Serious: No
  Sender: FDA-Public Use
  Company Number: US-B.I. PHARMACEUTICALS,INC./RIDGEFIELD-2013-BI-18427BP

PATIENT
  Age: 68 Year
  Sex: Male

DRUGS (9)
  1. SPIRIVA [Suspect]
     Indication: BRONCHITIS CHRONIC
     Dosage: 18 MCG
     Route: 055
     Dates: start: 201305
  2. AMBIEN [Concomitant]
     Indication: TENSION
     Route: 048
  3. FERROUS SULFATE [Concomitant]
     Indication: HAEMOGLOBIN DECREASED
     Route: 048
  4. XANAX [Concomitant]
     Indication: TENSION
  5. LIVALO [Concomitant]
     Indication: BLOOD CHOLESTEROL INCREASED
  6. ECOTRIN [Concomitant]
     Indication: CARDIAC DISORDER
     Dosage: 81 MG
     Route: 048
  7. OMEPRAZOLE [Concomitant]
     Indication: ABDOMINAL DISCOMFORT
     Route: 048
  8. ADVAIR [Concomitant]
     Indication: BRONCHITIS CHRONIC
  9. WELLBUTRIN [Concomitant]
     Indication: TENSION

REACTIONS (1)
  - Incorrect route of drug administration [Recovered/Resolved]
